FAERS Safety Report 10706574 (Version 1)
Quarter: 2015Q1

REPORT INFORMATION
  Report Type: Spontaneous
  Country: US (occurrence: None)
  Receive Date: 20150109
  Receipt Date: 20150109
  Transmission Date: 20150721
  Serious: Yes (Disabling, Other)
  Sender: FDA-Public Use
  Company Number: None

PATIENT
  Age: 55 Year
  Sex: Female
  Weight: 63.5 kg

DRUGS (2)
  1. CYMBALTA [Suspect]
     Active Substance: DULOXETINE HYDROCHLORIDE
     Indication: FIBROMYALGIA
     Dosage: 1 CAPSULE
     Route: 048
     Dates: end: 20150102
  2. CYMBALTA [Suspect]
     Active Substance: DULOXETINE HYDROCHLORIDE
     Indication: DEPRESSION
     Dosage: 1 CAPSULE
     Route: 048
     Dates: end: 20150102

REACTIONS (24)
  - Nausea [None]
  - Inappropriate affect [None]
  - Strabismus [None]
  - Abnormal dreams [None]
  - Unevaluable event [None]
  - Chills [None]
  - Drug withdrawal syndrome [None]
  - Pruritus [None]
  - Visual impairment [None]
  - Headache [None]
  - Ocular discomfort [None]
  - Vertigo [None]
  - Tinnitus [None]
  - Crying [None]
  - Impaired driving ability [None]
  - Burning sensation [None]
  - Paraesthesia [None]
  - Feeling cold [None]
  - Hypoaesthesia eye [None]
  - Hot flush [None]
  - Nervousness [None]
  - Cognitive disorder [None]
  - Thinking abnormal [None]
  - Sleep disorder [None]

NARRATIVE: CASE EVENT DATE: 20150102
